FAERS Safety Report 16140997 (Version 1)
Quarter: 2019Q2

REPORT INFORMATION
  Report Type: Spontaneous
  Country: US (occurrence: US)
  Receive Date: 20190330
  Receipt Date: 20190330
  Transmission Date: 20190711
  Serious: Yes (Disabling)
  Sender: FDA-Public Use
  Company Number: None

PATIENT
  Age: 52 Year
  Sex: Female
  Weight: 55.8 kg

DRUGS (1)
  1. INJECTAFER [Suspect]
     Active Substance: FERRIC CARBOXYMALTOSE
     Indication: ANAEMIA
     Dates: start: 20170425, end: 20170425

REACTIONS (5)
  - Pain of skin [None]
  - Chest discomfort [None]
  - Myalgia [None]
  - Musculoskeletal stiffness [None]
  - Myoclonus [None]

NARRATIVE: CASE EVENT DATE: 20170425
